FAERS Safety Report 24160948 (Version 1)
Quarter: 2024Q3

REPORT INFORMATION
  Report Type: Spontaneous
  Country: JP (occurrence: JP)
  Receive Date: 20240801
  Receipt Date: 20240801
  Transmission Date: 20241016
  Serious: Yes (Hospitalization, Other)
  Sender: RICONPHARMA
  Company Number: JP-RICONPHARMA, LLC-2024RIC000052

PATIENT
  Age: 7 Year
  Sex: Female
  Weight: 19.8 kg

DRUGS (1)
  1. CARBAMAZEPINE [Suspect]
     Active Substance: CARBAMAZEPINE
     Indication: Dyskinesia
     Dosage: UNK
     Route: 048

REACTIONS (2)
  - Pseudohypoparathyroidism [Recovered/Resolved]
  - Product use in unapproved indication [Unknown]
